FAERS Safety Report 4611763-4 (Version None)
Quarter: 2005Q1

REPORT INFORMATION
  Report Type: 
  Country: None (occurrence: None)
  Receive Date: 20050308
  Receipt Date: 20050126
  Transmission Date: 20050727
  Serious: Yes (Other)
  Sender: FDA-Public Use
  Company Number: 2004UW24975

PATIENT
  Age: 75 Year
  Sex: Female
  Weight: 64.8644 kg

DRUGS (14)
  1. CRESTOR [Suspect]
     Indication: HYPERCHOLESTEROLAEMIA
     Dosage: 5 GM QD PO
     Route: 048
     Dates: start: 20040729, end: 20040927
  2. ZETIA [Concomitant]
  3. LASIX [Concomitant]
  4. POTASSIUM CHLORIDE [Concomitant]
  5. GLUCOTROL [Concomitant]
  6. ALTACE [Concomitant]
  7. TOPROL-XL [Concomitant]
  8. PLAVIX [Concomitant]
  9. ASPIRIN [Concomitant]
  10. ATIVAN [Concomitant]
  11. PLAVIX [Concomitant]
  12. ALDACTONE [Concomitant]
  13. COMBIVENT [Concomitant]
  14. ACIPHEX [Concomitant]

REACTIONS (4)
  - ASTHENIA [None]
  - CARDIOMYOPATHY [None]
  - DYSPNOEA [None]
  - HYPOKINESIA [None]
